FAERS Safety Report 9845013 (Version 1)
Quarter: 2014Q1

REPORT INFORMATION
  Report Type: Spontaneous
  Country: GB (occurrence: None)
  Receive Date: 20140122
  Receipt Date: 20140122
  Transmission Date: 20141002
  Serious: Yes (Death, Life-Threatening, Hospitalization, Other)
  Sender: FDA-Public Use
  Company Number: 2013RN000026

PATIENT
  Age: 81 Year
  Sex: Female

DRUGS (21)
  1. ACYCLOVIR [Suspect]
  2. OFATUMUMAB (OFATUMUMAB) (UNKNOWN) [Suspect]
     Indication: CHRONIC LYMPHOCYTIC LEUKAEMIA
     Route: 042
     Dates: start: 20120704
  3. BENDAMUSTINE (BENDAMUSTINE) (BENDAMUSTINE) [Suspect]
     Indication: CHRONIC LYMPHOCYTIC LEUKAEMIA
     Route: 042
     Dates: start: 20120704
  4. FLUCONAZOLE (FLUCONAZOLE) [Concomitant]
  5. FRUSEMIDE /00032601/(FUROSEMIDE) [Concomitant]
  6. AMLORIDE (AMILORIDE) [Concomitant]
  7. PARACETAMOL )PARACETAMOL) [Concomitant]
  8. CHLORPHENIRAMINE /00027501/(CHLORPHENAMINE) [Concomitant]
  9. LORATADINE (LORATADINE) (LORATADINE) [Concomitant]
  10. PREDNISOLONE (PREDNISOLONE) [Concomitant]
  11. ALLOPURINOL (ALLOPURINOL) [Concomitant]
  12. METOCLOPRAMIDE (METOCLOPRAMIDE) [Concomitant]
  13. GRANULOCYTE COLONY-STIMULATING FACTOR NOS [Concomitant]
  14. BETNOVATE (BETAMETHASONE VALERATE) [Concomitant]
  15. HYDROCORTISONE (HYDROCORTISONE) [Concomitant]
  16. NYSTATIN (NYSTATIN) [Concomitant]
  17. EPADERM (EMULSIFYING WAX, PARAFFIN, LIQUID, PETROLATUM) [Concomitant]
  18. EUMOVATE [Suspect]
  19. PARAFFIN (PARAFFIN) [Concomitant]
  20. METHOTREXATE (METHOTREXATE) [Concomitant]
  21. OMEPRAZOLE (OMEPRAZOLE) [Concomitant]

REACTIONS (4)
  - Psoriasis [None]
  - Drug interaction [None]
  - Pneumonia [None]
  - Encephalopathy [None]
